FAERS Safety Report 13603445 (Version 1)
Quarter: 2017Q2

REPORT INFORMATION
  Report Type: Spontaneous
  Country: US (occurrence: US)
  Receive Date: 20170601
  Receipt Date: 20170601
  Transmission Date: 20170912
  Serious: Yes (Hospitalization)
  Sender: FDA-Public Use
  Company Number: US-OTSUKA-2017_003833

PATIENT
  Age: 66 Year
  Sex: Male

DRUGS (1)
  1. SAMSCA [Suspect]
     Indication: HYPONATRAEMIA
     Dosage: 15 MG, QD
     Route: 048
     Dates: start: 20170209, end: 20170210

REACTIONS (1)
  - Rapid correction of hyponatraemia [Unknown]

NARRATIVE: CASE EVENT DATE: 20170209
